FAERS Safety Report 8379776-7 (Version None)
Quarter: 2012Q2

REPORT INFORMATION
  Report Type: 
  Country: None (occurrence: None)
  Receive Date: 20120523
  Receipt Date: 20120515
  Transmission Date: 20120825
  Serious: Yes (Other)
  Sender: FDA-Public Use
  Company Number: US-ASTRAZENECA-2012SE00027

PATIENT
  Age: 65 Year
  Sex: Male
  Weight: 81 kg

DRUGS (12)
  1. REMERON [Concomitant]
     Route: 048
  2. SYNTHROID [Concomitant]
     Route: 048
  3. CAPRELSA [Suspect]
     Route: 048
     Dates: start: 20111202, end: 20120124
  4. OXYCODONE/ACETAMINOPHEN [Concomitant]
     Dosage: 5-325 MG DAILY
     Route: 048
  5. ONDASETRON HCL [Concomitant]
     Route: 048
  6. MORPHINE SULFATE [Concomitant]
     Route: 048
  7. CAPRELSA [Suspect]
     Indication: THYROID CANCER
     Route: 048
     Dates: start: 20111110, end: 20111123
  8. FLUOXETINE HYDROCHLORIDE [Concomitant]
     Route: 048
  9. NIACIN [Concomitant]
     Route: 048
  10. OMEPRAZOLE [Concomitant]
     Route: 048
  11. PREDNISONE TAB [Concomitant]
     Route: 048
  12. GUAIFENESIN [Concomitant]
     Route: 048

REACTIONS (1)
  - ELECTROCARDIOGRAM QT PROLONGED [None]
